FAERS Safety Report 15334182 (Version 1)
Quarter: 2018Q3

REPORT INFORMATION
  Report Type: Spontaneous
  Country: HR (occurrence: HR)
  Receive Date: 20180830
  Receipt Date: 20180830
  Transmission Date: 20181010
  Serious: Yes (Other)
  Sender: FDA-Public Use
  Company Number: HR-PFIZER INC-2018347351

PATIENT
  Age: 16 Year
  Sex: Female
  Weight: 63 kg

DRUGS (1)
  1. XANAX [Suspect]
     Active Substance: ALPRAZOLAM
     Dosage: 4 MG, 1X/DAY
     Route: 048
     Dates: start: 20180501, end: 20180501

REACTIONS (4)
  - Product use issue [Unknown]
  - Suicide attempt [Unknown]
  - Somnolence [Unknown]
  - Intentional product use issue [Unknown]

NARRATIVE: CASE EVENT DATE: 20180501
